FAERS Safety Report 9293342 (Version 3)
Quarter: 2014Q2

REPORT INFORMATION
  Report Type: Spontaneous
  Country: US (occurrence: US)
  Receive Date: 20130516
  Receipt Date: 20140623
  Transmission Date: 20141212
  Serious: Yes (Other)
  Sender: FDA-Public Use
  Company Number: US-009507513-1305USA009964

PATIENT
  Sex: Male
  Weight: 99.32 kg

DRUGS (3)
  1. PROPECIA [Suspect]
     Indication: ALOPECIA
     Dosage: 1 MG, QD
     Route: 048
     Dates: start: 2000, end: 201206
  2. PROPECIA [Suspect]
     Indication: ANDROGENETIC ALOPECIA
  3. SYNTHROID [Concomitant]
     Indication: HYPOTHYROIDISM
     Dosage: 0.05-0.088 MG, QD
     Dates: start: 2000

REACTIONS (22)
  - Intervertebral disc operation [Unknown]
  - Blood testosterone decreased [Unknown]
  - Blood cholesterol increased [Unknown]
  - Hypertension [Unknown]
  - Cough [Unknown]
  - Oropharyngeal pain [Unknown]
  - Headache [Unknown]
  - Glaucoma [Unknown]
  - Waist circumference increased [Unknown]
  - Migraine [Unknown]
  - Weight increased [Unknown]
  - Fatigue [Unknown]
  - Asthenia [Unknown]
  - Limb operation [Unknown]
  - Haemorrhoids [Unknown]
  - Testicular failure primary [Unknown]
  - Hypogonadism [Unknown]
  - Gynaecomastia [Unknown]
  - Libido decreased [Unknown]
  - Erectile dysfunction [Not Recovered/Not Resolved]
  - Sexual dysfunction [Not Recovered/Not Resolved]
  - Drug ineffective [Unknown]
